FAERS Safety Report 4307217-5 (Version None)
Quarter: 2004Q1

REPORT INFORMATION
  Report Type: 
  Country: None (occurrence: None)
  Receive Date: 20040225
  Receipt Date: 20040210
  Transmission Date: 20041129
  Serious: Yes (Other)
  Sender: FDA-Public Use
  Company Number: 2004009283

PATIENT
  Age: 20 Year
  Sex: Male

DRUGS (2)
  1. PSEUDOEPHEDRINE (PSEUDOEPHEDRINE) LIKE SUDAFED 12 HOUR CAPLETS ) [Suspect]
     Indication: SINUS HEADACHE
  2. IBUPROFEN [Suspect]
     Indication: PAIN

REACTIONS (8)
  - BILATERAL HYDRONEPHROSIS [None]
  - CALCULUS BLADDER [None]
  - NAUSEA [None]
  - OEDEMA PERIPHERAL [None]
  - RENAL PAPILLARY NECROSIS [None]
  - SELF-MEDICATION [None]
  - URINE CALCIUM INCREASED [None]
  - VOMITING [None]
